FAERS Safety Report 12768322 (Version 2)
Quarter: 2016Q4

REPORT INFORMATION
  Report Type: Report from Study
  Country: DE (occurrence: DE)
  Receive Date: 20160921
  Receipt Date: 20161105
  Transmission Date: 20170207
  Serious: Yes (Hospitalization)
  Sender: FDA-Public Use
  Company Number: US-ASTRAZENECA-2016SF00172

PATIENT
  Age: 159 Day
  Sex: Male

DRUGS (4)
  1. SYNAGIS [Suspect]
     Active Substance: PALIVIZUMAB
     Indication: ANTIVIRAL PROPHYLAXIS
     Dosage: 57 DF
     Route: 030
     Dates: start: 20091218, end: 20091218
  2. SYNAGIS [Suspect]
     Active Substance: PALIVIZUMAB
     Indication: ANTIVIRAL PROPHYLAXIS
     Route: 030
     Dates: start: 20091019, end: 20091019
  3. SYNAGIS [Suspect]
     Active Substance: PALIVIZUMAB
     Indication: ANTIVIRAL PROPHYLAXIS
     Dosage: 70 DF
     Route: 030
     Dates: start: 20100211, end: 20100211
  4. SYNAGIS [Suspect]
     Active Substance: PALIVIZUMAB
     Indication: ANTIVIRAL PROPHYLAXIS
     Route: 030
     Dates: start: 20091118, end: 20091118

REACTIONS (1)
  - Respiratory syncytial virus bronchitis [Recovered/Resolved]

NARRATIVE: CASE EVENT DATE: 20100302
